FAERS Safety Report 5068359-2 (Version None)
Quarter: 2006Q3

REPORT INFORMATION
  Report Type: 
  Country: None (occurrence: None)
  Receive Date: 20060802
  Receipt Date: 20050818
  Transmission Date: 20061208
  Serious: Yes (Other)
  Sender: FDA-Public Use
  Company Number: US-BRISTOL-MYERS SQUIBB COMPANY-13082284

PATIENT
  Age: 77 Year
  Sex: Male
  Weight: 109 kg

DRUGS (10)
  1. COUMADIN [Suspect]
     Indication: STENT PLACEMENT
     Dosage: INITIALLY ALTERNATING 5MG + 7MG QD; STOPPED MED ^ON OWN^ ABOUT 1 YEAR AGO
     Dates: end: 20040301
  2. PLAVIX [Suspect]
     Indication: STENT PLACEMENT
     Dosage: ONGOING FOR 4 TO 5 YEARS
     Route: 048
  3. AVANDIA [Concomitant]
  4. CAPTOPRIL [Concomitant]
  5. CRESTOR [Concomitant]
  6. DIABETA [Concomitant]
  7. IMDUR [Concomitant]
  8. LASIX [Concomitant]
  9. LOPRESSOR [Concomitant]
  10. PLETAL [Concomitant]

REACTIONS (3)
  - CONTUSION [None]
  - EPISTAXIS [None]
  - PAIN OF SKIN [None]
